FAERS Safety Report 8265087-7 (Version None)
Quarter: 2012Q2

REPORT INFORMATION
  Report Type: 
  Country: None (occurrence: None)
  Receive Date: 20120406
  Receipt Date: 20120402
  Transmission Date: 20120825
  Serious: No
  Sender: FDA-Public Use
  Company Number: US-PFIZER INC-2011087925

PATIENT
  Sex: Female
  Weight: 58.05 kg

DRUGS (3)
  1. NORCO [Suspect]
     Indication: NEURALGIA
     Dosage: 10/325 MG, EVERY 6 HOURS
  2. AMOXICILLIN AND CLAVULANATE POTASSIUM [Concomitant]
     Indication: SINUSITIS
     Dosage: UNK
  3. LYRICA [Suspect]
     Indication: FIBROMYALGIA
     Dosage: 100 MG, 4X/DAY
     Route: 048
     Dates: end: 20120330

REACTIONS (3)
  - BONE DISORDER [None]
  - FIBROMYALGIA [None]
  - DRUG INEFFECTIVE [None]
